FAERS Safety Report 19663203 (Version 4)
Quarter: 2022Q1

REPORT INFORMATION
  Report Type: Report from Study
  Country: IT (occurrence: IT)
  Receive Date: 20210805
  Receipt Date: 20220103
  Transmission Date: 20220423
  Serious: Yes (Other)
  Sender: FDA-Public Use
  Company Number: IT-TAKEDA-2021TUS048089

PATIENT
  Age: 49 Year
  Sex: Male

DRUGS (16)
  1. TEDUGLUTIDE [Suspect]
     Active Substance: TEDUGLUTIDE
     Indication: Short-bowel syndrome
     Dosage: 2.80 MILLIGRAM, QD
     Route: 065
     Dates: start: 20190304, end: 20210131
  2. TEDUGLUTIDE [Suspect]
     Active Substance: TEDUGLUTIDE
     Indication: Short-bowel syndrome
     Dosage: 2.80 MILLIGRAM, QD
     Route: 065
     Dates: start: 20190304, end: 20210131
  3. TEDUGLUTIDE [Suspect]
     Active Substance: TEDUGLUTIDE
     Indication: Short-bowel syndrome
     Dosage: 2.80 MILLIGRAM, QD
     Route: 065
     Dates: start: 20190304, end: 20210131
  4. TEDUGLUTIDE [Suspect]
     Active Substance: TEDUGLUTIDE
     Indication: Short-bowel syndrome
     Dosage: 2.80 MILLIGRAM, QD
     Route: 065
     Dates: start: 20190304, end: 20210131
  5. TEDUGLUTIDE [Suspect]
     Active Substance: TEDUGLUTIDE
     Dosage: 2.80 MILLIGRAM, QD
     Route: 065
     Dates: start: 20210201
  6. TEDUGLUTIDE [Suspect]
     Active Substance: TEDUGLUTIDE
     Dosage: 2.80 MILLIGRAM, QD
     Route: 065
     Dates: start: 20210201
  7. TEDUGLUTIDE [Suspect]
     Active Substance: TEDUGLUTIDE
     Dosage: 2.80 MILLIGRAM, QD
     Route: 065
     Dates: start: 20210201
  8. TEDUGLUTIDE [Suspect]
     Active Substance: TEDUGLUTIDE
     Dosage: 2.80 MILLIGRAM, QD
     Route: 065
     Dates: start: 20210201
  9. TEDUGLUTIDE [Suspect]
     Active Substance: TEDUGLUTIDE
     Dosage: 2.80 MILLIGRAM, QD
     Route: 065
     Dates: start: 20190304, end: 20201205
  10. TEDUGLUTIDE [Suspect]
     Active Substance: TEDUGLUTIDE
     Dosage: 2.80 MILLIGRAM, QD
     Route: 065
     Dates: start: 20190304, end: 20201205
  11. TEDUGLUTIDE [Suspect]
     Active Substance: TEDUGLUTIDE
     Dosage: 2.80 MILLIGRAM, QD
     Route: 065
     Dates: start: 20190304, end: 20201205
  12. TEDUGLUTIDE [Suspect]
     Active Substance: TEDUGLUTIDE
     Dosage: 2.80 MILLIGRAM, QD
     Route: 065
     Dates: start: 20190304, end: 20201205
  13. LEVOFLOXACIN [Concomitant]
     Active Substance: LEVOFLOXACIN
     Indication: Short-bowel syndrome
     Dosage: 500 MILLIGRAM
     Route: 048
     Dates: start: 20210428
  14. ENOXAPARIN SODIUM [Concomitant]
     Active Substance: ENOXAPARIN SODIUM
     Indication: Thrombosis prophylaxis
     Dosage: 4000 INTERNATIONAL UNIT, QD
     Route: 058
     Dates: start: 20210216
  15. VANCOMYCIN [Concomitant]
     Active Substance: VANCOMYCIN
     Indication: Vascular device infection
     Dosage: 999 UNK
     Route: 042
     Dates: start: 202012, end: 202012
  16. COVID-19 VACCINE NOS [Concomitant]
     Active Substance: COVID-19 VACCINE NOS
     Indication: COVID-19 immunisation
     Dosage: 999 UNK
     Route: 065
     Dates: start: 20210401

REACTIONS (5)
  - Gastric mucosal hypertrophy [Not Recovered/Not Resolved]
  - Staphylococcal infection [Recovered/Resolved with Sequelae]
  - Benign prostatic hyperplasia [Not Recovered/Not Resolved]
  - Stoma site extravasation [Recovered/Resolved]
  - Gastrointestinal stoma complication [Recovered/Resolved]

NARRATIVE: CASE EVENT DATE: 20210111
